FAERS Safety Report 10016481 (Version 1)
Quarter: 2014Q1

REPORT INFORMATION
  Report Type: Spontaneous
  Country: US (occurrence: US)
  Receive Date: 20140317
  Receipt Date: 20140317
  Transmission Date: 20141002
  Serious: Yes (Other)
  Sender: FDA-Public Use
  Company Number: PHHY2014US031575

PATIENT
  Age: 6 Year
  Sex: Male

DRUGS (11)
  1. HYDROCHLOROTHIAZIDE [Suspect]
  2. VORICONAZOLE [Suspect]
     Indication: ANTIFUNGAL PROPHYLAXIS
     Dosage: UNK
  3. CICLOSPORIN [Suspect]
     Indication: GRAFT VERSUS HOST DISEASE
  4. THYROXINE [Concomitant]
  5. NIFEDIPINE [Concomitant]
  6. OLANZAPINE [Concomitant]
  7. LOSARTAN [Concomitant]
  8. MEGESTROL [Concomitant]
  9. METHADONE [Concomitant]
  10. HYDROCORTISONE [Concomitant]
  11. THIOTEPA [Concomitant]
     Indication: GRAFT VERSUS HOST DISEASE

REACTIONS (5)
  - Photosensitivity reaction [Recovering/Resolving]
  - Rash erythematous [Recovering/Resolving]
  - Rash papular [Recovering/Resolving]
  - Ephelides [Recovering/Resolving]
  - Graft versus host disease in skin [Unknown]
